FAERS Safety Report 10130077 (Version 1)
Quarter: 2014Q2

REPORT INFORMATION
  Report Type: Spontaneous
  Country: US (occurrence: None)
  Receive Date: 20140425
  Receipt Date: 20140425
  Transmission Date: 20141212
  Serious: No
  Sender: FDA-Public Use
  Company Number: None

PATIENT
  Age: 40 Year
  Sex: Female
  Weight: 97.52 kg

DRUGS (1)
  1. LYRICA 100 MG [Suspect]
     Indication: FIBROMYALGIA
     Dosage: 1 PILL, TWICE DAILY, TAKEN BY MOUTH
     Route: 048

REACTIONS (4)
  - Dizziness [None]
  - Somnolence [None]
  - Anxiety [None]
  - Disturbance in attention [None]
